FAERS Safety Report 6473169-5 (Version None)
Quarter: 2009Q4

REPORT INFORMATION
  Report Type: 
  Country: None (occurrence: None)
  Receive Date: 20091204
  Receipt Date: 20090713
  Transmission Date: 20100525
  Serious: Yes (Hospitalization, Other)
  Sender: FDA-Public Use
  Company Number: US-ELI_LILLY_AND_COMPANY-US200805004102

PATIENT
  Sex: Female

DRUGS (15)
  1. HUMULIN R [Suspect]
  2. DARVOCET [Concomitant]
  3. IBUPROFEN [Concomitant]
  4. ALBUTEROL [Concomitant]
     Dosage: UNK, AS NEEDED
  5. CALCIUM [Concomitant]
     Dosage: 1 D/F, DAILY (1/D)
  6. NORVASC [Concomitant]
     Dosage: 5 G, DAILY (1/D)
  7. VASOTEC [Concomitant]
     Dosage: 20 G, DAILY (1/D)
  8. EVISTA [Concomitant]
     Dosage: 60 G, DAILY (1/D)
  9. GLUCOPHAGE [Concomitant]
     Dosage: 500 UNK, DAILY (1/D)
  10. LASIX [Concomitant]
     Dosage: 20 G, DAILY (1/D)
  11. NEURONTIN [Concomitant]
     Dosage: 600 G, 2/D
  12. SYNTHROID [Concomitant]
     Dosage: 0.2 MG, DAILY (1/D)
  13. ZOCOR [Concomitant]
     Dosage: 40 G, DAILY (1/D)
  14. NITRO-DUR [Concomitant]
  15. TOPROL-XL [Concomitant]
     Dosage: 25 G, DAILY (1/D)

REACTIONS (5)
  - CORONARY ARTERY DISEASE [None]
  - FRACTURE [None]
  - MYOCARDIAL ISCHAEMIA [None]
  - PAIN [None]
  - PNEUMONIA [None]
